FAERS Safety Report 15456650 (Version 1)
Quarter: 2018Q4

REPORT INFORMATION
  Report Type: Spontaneous
  Country: FR (occurrence: FR)
  Receive Date: 20181002
  Receipt Date: 20181002
  Transmission Date: 20190204
  Serious: Yes (Other)
  Sender: FDA-Public Use
  Company Number: FR-MYLANLABS-2018M1071184

PATIENT
  Age: 45 Year
  Sex: Female

DRUGS (6)
  1. BENDAMUSTINE HYDROCHLORIDE. [Suspect]
     Active Substance: BENDAMUSTINE HYDROCHLORIDE
     Indication: NON-HODGKIN^S LYMPHOMA STAGE III
     Dosage: 200 MG/M2, UNK (AT D-7 AND D-6 (BEAM CONDITIONING REGIMEN))
  2. ARACYTINE [Suspect]
     Active Substance: CYTARABINE
     Indication: BONE MARROW CONDITIONING REGIMEN
     Dosage: UNK , 12 HOUR (FROM D-6 TO D-3 (BEAM CONDITIONING REGIMEN))
  3. ETOPOSIDE. [Suspect]
     Active Substance: ETOPOSIDE
     Indication: BONE MARROW CONDITIONING REGIMEN
     Dosage: 200 MG/M2, 12 HOUR (FROM D-6 TO D-3 (BEAM CONDITIONING REGIMEN))
  4. MELPHALAN. [Suspect]
     Active Substance: MELPHALAN
     Indication: BONE MARROW CONDITIONING REGIMEN
     Dosage: 140 MG/M2, UNK (AT D-2 (BEAM CONDITIONING REGIMEN))
  5. BENDAMUSTINE HYDROCHLORIDE. [Suspect]
     Active Substance: BENDAMUSTINE HYDROCHLORIDE
     Indication: BONE MARROW CONDITIONING REGIMEN
     Dosage: 90 MG/M2, UNK (SIX COURSES OF R- BENDAMUSTINE D1/D28)
  6. RITUXIMAB. [Concomitant]
     Active Substance: RITUXIMAB
     Indication: NON-HODGKIN^S LYMPHOMA STAGE III
     Dosage: SIX COURSES OF R- BENDAMUSTINE D1/D28

REACTIONS (4)
  - Acute kidney injury [Recovered/Resolved]
  - Thrombotic microangiopathy [Unknown]
  - Venoocclusive liver disease [Unknown]
  - Product use in unapproved indication [Unknown]
